FAERS Safety Report 5091672-X (Version None)
Quarter: 2006Q3

REPORT INFORMATION
  Report Type: 
  Country: None (occurrence: None)
  Receive Date: 20060824
  Receipt Date: 20060815
  Transmission Date: 20061208
  Serious: Yes (Other)
  Sender: FDA-Public Use
  Company Number: 2006099784

PATIENT
  Age: 78 Year
  Sex: Male
  Weight: 77 kg

DRUGS (6)
  1. SPIRONOLACTONE [Suspect]
     Indication: HYPOKALAEMIA
     Dosage: 25 MG, ORAL
     Route: 048
     Dates: start: 20060608, end: 20060611
  2. AMLODIPINE [Concomitant]
  3. BENDROFLUMETHIAZIDE (BENDROFLUMETHIAZIDE) [Concomitant]
  4. CHONDROITIN (CHONDROITIN SULFATE) [Concomitant]
  5. GLUCOSAMINE (GLUCOSAMINE) [Concomitant]
  6. LISINOPRIL [Concomitant]

REACTIONS (2)
  - DYSPNOEA EXERTIONAL [None]
  - HAEMOPTYSIS [None]
